FAERS Safety Report 5421745-0 (Version None)
Quarter: 2007Q3

REPORT INFORMATION
  Report Type: 
  Country: None (occurrence: None)
  Receive Date: 20070821
  Receipt Date: 20070810
  Transmission Date: 20080115
  Serious: Yes (Other)
  Sender: FDA-Public Use
  Company Number: US-PFIZER INC-2007067643

PATIENT
  Sex: Female
  Weight: 63.5 kg

DRUGS (4)
  1. CHANTIX [Suspect]
     Indication: SMOKING CESSATION THERAPY
     Dates: start: 20070801, end: 20070809
  2. MECLIZINE [Concomitant]
  3. ALDACTONE [Concomitant]
  4. MULTIVITAMIN [Concomitant]

REACTIONS (2)
  - ABASIA [None]
  - IMPAIRED DRIVING ABILITY [None]
